FAERS Safety Report 26104575 (Version 1)
Quarter: 2025Q4

REPORT INFORMATION
  Report Type: Report from Study
  Country: CO (occurrence: CO)
  Receive Date: 20251130
  Receipt Date: 20251130
  Transmission Date: 20260117
  Serious: Yes (Hospitalization)
  Sender: ABBVIE
  Company Number: CO-JNJFOC-20251170109

PATIENT
  Age: 76 Year
  Sex: Female
  Weight: 56 kg

DRUGS (1)
  1. IMBRUVICA [Suspect]
     Active Substance: IBRUTINIB
     Indication: Mantle cell lymphoma
     Route: 048
     Dates: start: 20240511

REACTIONS (3)
  - Gastrointestinal inflammation [Unknown]
  - Blood uric acid increased [Unknown]
  - Hypertension [Unknown]

NARRATIVE: CASE EVENT DATE: 20251117
